FAERS Safety Report 19286924 (Version 1)
Quarter: 2021Q2

REPORT INFORMATION
  Report Type: Spontaneous
  Country: NL (occurrence: NL)
  Receive Date: 20210521
  Receipt Date: 20210521
  Transmission Date: 20210717
  Serious: Yes (Life-Threatening, Disabling, Other)
  Sender: FDA-Public Use
  Company Number: NL-TEVA-2021-NL-1912526

PATIENT
  Age: 63 Year
  Sex: Male
  Weight: 90 kg

DRUGS (3)
  1. METOPROLOL TABLET MGA 200MG (SUCCINAAT) / BRAND NAME NOT SPECIFIED [Suspect]
     Active Substance: METOPROLOL SUCCINATE
     Indication: HYPERTENSION
     Dosage: 1 X DAILY, 1DF
     Route: 065
     Dates: start: 201003, end: 20201001
  2. HYDROCHLOORTHIAZIDE TABLET 25MG / BRAND NAME NOT SPECIFIED [Concomitant]
     Active Substance: HYDROCHLOROTHIAZIDE
     Dosage: 25 MILLIGRAM DAILY; THERAPY START DATE ASKU, THERAPY END DATE ASKU
  3. AMLODIPINE [Concomitant]
     Active Substance: AMLODIPINE BESYLATE
     Dosage: 10 MILLIGRAM DAILY; THERAPY START DATE ASKU, THERAPY END DATE ASKU

REACTIONS (3)
  - Hypotension [Unknown]
  - Bradycardia [Unknown]
  - Syncope [Unknown]

NARRATIVE: CASE EVENT DATE: 20170510
